FAERS Safety Report 4810254-5 (Version None)
Quarter: 2005Q4

REPORT INFORMATION
  Report Type: 
  Country: None (occurrence: None)
  Receive Date: 20051026
  Receipt Date: 20051020
  Transmission Date: 20060501
  Serious: Yes (Death)
  Sender: FDA-Public Use
  Company Number: 2005-UK-00344UK

PATIENT
  Sex: Male

DRUGS (9)
  1. BECLOMETHASONE DIPROPIONATE [Suspect]
     Dosage: 2PUFF THREE TIMES PER DAY
     Route: 065
  2. SALBUTAMOL [Suspect]
     Route: 065
     Dates: start: 20000606
  3. SPIRIVA [Suspect]
     Dosage: 18MCG PER DAY
     Dates: start: 20030115
  4. FRUSEMIDE [Suspect]
     Dosage: 40MG PER DAY
     Route: 065
     Dates: start: 20011129
  5. PREDNISOLONE [Suspect]
     Dosage: 1MG THREE TIMES PER DAY
     Route: 065
  6. RAMIPRIL [Suspect]
     Dosage: 2.5MG PER DAY
     Route: 065
     Dates: start: 20001023
  7. THEOPHYLLINE [Suspect]
     Dosage: 400MG TWICE PER DAY
     Route: 065
  8. WARFARIN [Suspect]
     Dosage: 3MG PER DAY
     Route: 065
     Dates: start: 20000418
  9. SALBUTAMOL [Concomitant]
     Dosage: 200MCG THREE TIMES PER DAY
     Route: 055

REACTIONS (1)
  - CHRONIC OBSTRUCTIVE PULMONARY DISEASE [None]
